FAERS Safety Report 9145463 (Version 1)
Quarter: 2013Q1

REPORT INFORMATION
  Report Type: Spontaneous
  Country: US (occurrence: None)
  Receive Date: 20130226
  Receipt Date: 20130226
  Transmission Date: 20140127
  Serious: Yes (Hospitalization)
  Sender: FDA-Public Use
  Company Number: None

PATIENT
  Sex: Female
  Weight: 50.9 kg

DRUGS (5)
  1. METHOTREXATE [Suspect]
     Indication: PYREXIA
  2. METHOTREXATE [Suspect]
     Indication: PYREXIA
  3. PROCARBAZINE [Suspect]
  4. RITUXIMAB (MOAB C2B8 ANTI CD20, CHIMERIC) [Suspect]
  5. VINCRISTINE SULFATE [Suspect]

REACTIONS (6)
  - Nausea [None]
  - Hypophagia [None]
  - Mucosal inflammation [None]
  - Pyrexia [None]
  - Dehydration [None]
  - Decreased appetite [None]
